FAERS Safety Report 20405103 (Version 3)
Quarter: 2022Q1

REPORT INFORMATION
  Report Type: Spontaneous
  Country: GB (occurrence: GB)
  Receive Date: 20220131
  Receipt Date: 20220311
  Transmission Date: 20220423
  Serious: Yes (Death)
  Sender: FDA-Public Use
  Company Number: GB-BAYER-2022A013359

PATIENT
  Age: 61 Year
  Sex: Male

DRUGS (1)
  1. STIVARGA [Suspect]
     Active Substance: REGORAFENIB
     Indication: Small intestine carcinoma metastatic
     Dosage: UNK
     Dates: start: 20210923, end: 202111

REACTIONS (2)
  - Small intestine carcinoma metastatic [Fatal]
  - Off label use [None]

NARRATIVE: CASE EVENT DATE: 20211119
